FAERS Safety Report 9418250 (Version 3)
Quarter: 2014Q2

REPORT INFORMATION
  Report Type: Spontaneous
  Country: US (occurrence: US)
  Receive Date: 20130724
  Receipt Date: 20140606
  Transmission Date: 20141212
  Serious: Yes (Other)
  Sender: FDA-Public Use
  Company Number: US-GILEAD-2013-0079639

PATIENT
  Age: 65 Year
  Sex: Male
  Weight: 69.75 kg

DRUGS (3)
  1. TRUVADA [Suspect]
     Indication: HIV INFECTION
     Dosage: 500 MG, UNK
     Route: 065
     Dates: start: 20070213, end: 20130708
  2. COMBIVIR [Concomitant]
     Indication: HIV INFECTION
     Dosage: UNK
     Route: 048
     Dates: start: 201305
  3. KALETRA [Concomitant]
     Indication: HIV INFECTION
     Dosage: UNK
     Dates: start: 201305

REACTIONS (2)
  - Renal tubular disorder [Not Recovered/Not Resolved]
  - Renal failure [Unknown]
